FAERS Safety Report 6519097-8 (Version None)
Quarter: 2009Q4

REPORT INFORMATION
  Report Type: 
  Country: None (occurrence: None)
  Receive Date: 20091228
  Receipt Date: 20091219
  Transmission Date: 20100525
  Serious: Yes (Other)
  Sender: FDA-Public Use
  Company Number: BR-BAYER-200925605LA

PATIENT
  Age: 21 Year
  Sex: Female
  Weight: 65 kg

DRUGS (1)
  1. AVELOX [Suspect]
     Indication: PNEUMONIA
     Route: 065
     Dates: start: 20091214

REACTIONS (2)
  - BACK PAIN [None]
  - HAEMATEMESIS [None]
